FAERS Safety Report 5875021-2 (Version None)
Quarter: 2008Q3

REPORT INFORMATION
  Report Type: 
  Country: None (occurrence: None)
  Receive Date: 20080908
  Receipt Date: 20080908
  Transmission Date: 20090109
  Serious: Yes (Other)
  Sender: FDA-Public Use
  Company Number: None

PATIENT
  Sex: Female
  Weight: 113.3993 kg

DRUGS (1)
  1. NAPROXEN [Suspect]
     Indication: MUSCLE INJURY
     Dosage: 500 MG  2X DAILY  PO
     Route: 048
     Dates: start: 20080518, end: 20080815

REACTIONS (6)
  - ABDOMINAL PAIN UPPER [None]
  - DIARRHOEA [None]
  - FAECES DISCOLOURED [None]
  - FLATULENCE [None]
  - INSOMNIA [None]
  - SLUGGISHNESS [None]
